FAERS Safety Report 17554206 (Version 4)
Quarter: 2020Q3

REPORT INFORMATION
  Report Type: Spontaneous
  Country: US (occurrence: US)
  Receive Date: 20200318
  Receipt Date: 20200727
  Transmission Date: 20201102
  Serious: Yes (Hospitalization)
  Sender: FDA-Public Use
  Company Number: US-PFIZER INC-2019357485

PATIENT
  Age: 62 Year
  Sex: Male
  Weight: 101.6 kg

DRUGS (2)
  1. LYRICA [Suspect]
     Active Substance: PREGABALIN
     Indication: POLYNEUROPATHY
     Dosage: 250 MG, DAILY (2 CAPSULES IN THE MORNING AND 3 CAPSULE IN THE EVENING)
     Route: 048
     Dates: start: 201910
  2. LYRICA [Suspect]
     Active Substance: PREGABALIN
     Indication: NEUROPATHY PERIPHERAL
     Dosage: 400 MG, DAILY (1 CAPSULE IN THE MORNING AND MIDDAY AND 2 CAPSULES AT BEDTIME)
     Route: 048

REACTIONS (1)
  - Myocardial infarction [Unknown]

NARRATIVE: CASE EVENT DATE: 2019
